FAERS Safety Report 4265980-6 (Version None)
Quarter: 2004Q1

REPORT INFORMATION
  Report Type: 
  Country: None (occurrence: None)
  Receive Date: 20040106
  Receipt Date: 20031204
  Transmission Date: 20041129
  Serious: Yes (Life-Threatening, Hospitalization, Disabling)
  Sender: FDA-Public Use
  Company Number: 2003122989

PATIENT
  Age: 77 Year
  Sex: Male
  Weight: 75 kg

DRUGS (7)
  1. ATORVASTATIN (ATORVASTATIN) [Suspect]
     Indication: PROPHYLAXIS
     Dosage: 20 MG (DAILY), ORAL
     Route: 048
     Dates: start: 20020901, end: 20031027
  2. FUSIDIC ACID [Suspect]
     Indication: POSTOPERATIVE INFECTION
     Dosage: 1500 MG (THREE TIMES A DAY), ORAL
     Route: 048
     Dates: start: 20030925, end: 20031001
  3. PERINDOPRIL (PERINDOPRIL) [Concomitant]
  4. DIAZEPAM [Concomitant]
  5. TERBUTALINE SULFATE [Concomitant]
  6. BUDESONIDE (BUDESONIDE) [Concomitant]
  7. MINOCYCLINE HCL [Concomitant]

REACTIONS (6)
  - ASTHENIA [None]
  - HAEMODIALYSIS [None]
  - POSTOPERATIVE INFECTION [None]
  - RENAL FAILURE ACUTE [None]
  - RHABDOMYOLYSIS [None]
  - STAPHYLOCOCCAL INFECTION [None]
